FAERS Safety Report 10882519 (Version 2)
Quarter: 2015Q3

REPORT INFORMATION
  Report Type: Spontaneous
  Country: US (occurrence: US)
  Receive Date: 20150303
  Receipt Date: 20150806
  Transmission Date: 20151125
  Serious: Yes (Hospitalization, Other)
  Sender: FDA-Public Use
  Company Number: US-BAYER-2015-031968

PATIENT
  Age: 21 Year
  Sex: Female
  Weight: 86.17 kg

DRUGS (4)
  1. FERROUS SULFATE [Concomitant]
     Active Substance: FERROUS SULFATE\FERROUS SULFATE, DRIED
     Dosage: DAILY DOSE 40 MG
     Route: 048
     Dates: start: 20120213
  2. MIRENA [Suspect]
     Active Substance: LEVONORGESTREL
     Indication: CONTRACEPTION
     Dosage: 20 MCG/24HR, CONT
     Route: 015
     Dates: start: 20100507, end: 20120422
  3. TOPIRAMATE. [Concomitant]
     Active Substance: TOPIRAMATE
     Dosage: 10 MG, BID
     Route: 048
     Dates: start: 20120213
  4. MAGNESIUM OXIDE. [Concomitant]
     Active Substance: MAGNESIUM OXIDE
     Dosage: 400 MG, BID
     Route: 048
     Dates: start: 20120213

REACTIONS (11)
  - Anhedonia [None]
  - Emotional distress [None]
  - Seizure [None]
  - Migraine [None]
  - Injury [Recovered/Resolved]
  - Abdominal pain lower [Recovered/Resolved]
  - General physical health deterioration [Recovered/Resolved]
  - Uterine perforation [Recovered/Resolved]
  - Anxiety [None]
  - Pelvic pain [Recovered/Resolved]
  - Device issue [None]

NARRATIVE: CASE EVENT DATE: 2010
